FAERS Safety Report 9477536 (Version 2)
Quarter: 2013Q3

REPORT INFORMATION
  Report Type: Report from Study
  Country: GB (occurrence: GB)
  Receive Date: 20130827
  Receipt Date: 20130917
  Transmission Date: 20140515
  Serious: Yes (Hospitalization, Disabling, Other)
  Sender: FDA-Public Use
  Company Number: GB-ROCHE-1265796

PATIENT
  Age: 69 Year
  Sex: Male

DRUGS (9)
  1. RITUXIMAB [Suspect]
     Indication: CHRONIC LYMPHOCYTIC LEUKAEMIA
     Route: 042
     Dates: start: 20130701
  2. BLINDED GS-1101 [Suspect]
     Indication: CHRONIC LYMPHOCYTIC LEUKAEMIA
     Route: 048
     Dates: start: 20130520, end: 20130718
  3. BENDAMUSTINE [Suspect]
     Indication: CHRONIC LYMPHOCYTIC LEUKAEMIA
     Route: 042
     Dates: start: 20130701
  4. FILGRASTIM [Concomitant]
     Route: 065
     Dates: start: 20130528
  5. FORTISIP [Concomitant]
  6. ACYCLOVIR [Concomitant]
     Route: 065
     Dates: end: 201006
  7. PENICILLIN V [Concomitant]
  8. CODEINE PHOSPHATE [Concomitant]
  9. IMMUNOGLOBULIN [Concomitant]
     Route: 065
     Dates: start: 201108

REACTIONS (2)
  - Ascites [Not Recovered/Not Resolved]
  - Neutropenic sepsis [Recovered/Resolved]
